FAERS Safety Report 24920247 (Version 1)
Quarter: 2025Q1

REPORT INFORMATION
  Report Type: Spontaneous
  Country: PT (occurrence: PT)
  Receive Date: 20250204
  Receipt Date: 20250204
  Transmission Date: 20250408
  Serious: Yes (Other)
  Sender: ORGANON
  Company Number: PT-ORGANON-O2501PRT003059

PATIENT
  Sex: Female

DRUGS (1)
  1. ETONOGESTREL [Suspect]
     Active Substance: ETONOGESTREL
     Indication: Contraception
     Route: 059

REACTIONS (3)
  - Device placement issue [Not Recovered/Not Resolved]
  - Arteriovenous fistula site haemorrhage [Unknown]
  - Implant site haemorrhage [Unknown]
